FAERS Safety Report 21610194 (Version 3)
Quarter: 2022Q4

REPORT INFORMATION
  Report Type: Spontaneous
  Country: US (occurrence: US)
  Receive Date: 20221117
  Receipt Date: 20221124
  Transmission Date: 20230112
  Serious: No
  Sender: FDA-Public Use
  Company Number: US-UNITED THERAPEUTICS-UNT-2022-027662

PATIENT
  Sex: Male

DRUGS (4)
  1. TYVASO DPI [Suspect]
     Active Substance: TREPROSTINIL
     Indication: Product used for unknown indication
     Dosage: UNK
     Dates: start: 202208
  2. TYVASO DPI [Suspect]
     Active Substance: TREPROSTINIL
     Indication: Product used for unknown indication
     Dosage: UNK
  3. TYVASO DPI [Suspect]
     Active Substance: TREPROSTINIL
     Indication: Product used for unknown indication
     Dosage: UNK
  4. TYVASO [Suspect]
     Active Substance: TREPROSTINIL
     Indication: Product used for unknown indication
     Dosage: UNK

REACTIONS (6)
  - Productive cough [Unknown]
  - Dyspnoea [Unknown]
  - Mobility decreased [Unknown]
  - Oropharyngeal discomfort [Unknown]
  - Therapeutic product effect decreased [Unknown]
  - Product physical issue [Unknown]

NARRATIVE: CASE EVENT DATE: 20220101
